FAERS Safety Report 5533666-3 (Version None)
Quarter: 2007Q4

REPORT INFORMATION
  Report Type: 
  Country: None (occurrence: None)
  Receive Date: 20071129
  Receipt Date: 20071116
  Transmission Date: 20080405
  Serious: Yes (Hospitalization)
  Sender: FDA-Public Use
  Company Number: TCI2007A06289

PATIENT
  Age: 66 Year
  Sex: Female

DRUGS (4)
  1. ACTOS [Suspect]
     Indication: TYPE 2 DIABETES MELLITUS
     Dosage: 30 MG (30 MG, 1 D) PER ORAL
     Route: 048
     Dates: start: 20070218, end: 20070818
  2. AMLODIPINE BESYLATE [Concomitant]
  3. AMARYL [Concomitant]
  4. CRESTOR [Concomitant]

REACTIONS (5)
  - OEDEMA [None]
  - PLEURAL EFFUSION [None]
  - RESPIRATORY FAILURE [None]
  - SLEEP APNOEA SYNDROME [None]
  - WEIGHT INCREASED [None]
